FAERS Safety Report 18220999 (Version 9)
Quarter: 2022Q4

REPORT INFORMATION
  Report Type: Other
  Country: EG (occurrence: None)
  Receive Date: 20200902
  Receipt Date: 20221017
  Transmission Date: 20230112
  Serious: Yes (Life-Threatening, Hospitalization, Other)
  Sender: FDA-Public Use
  Company Number: EG-ROCHE-2666391

PATIENT
  Age: 29 Year
  Sex: Male
  Weight: 81 kg

DRUGS (3)
  1. OCREVUS [Suspect]
     Active Substance: OCRELIZUMAB
     Indication: Multiple sclerosis
     Dosage: ONGOING
     Route: 042
     Dates: start: 20191215
  2. CEFTRIAXONE [Concomitant]
     Active Substance: CEFTRIAXONE
  3. SOLU-MEDROL [Concomitant]
     Active Substance: METHYLPREDNISOLONE SODIUM SUCCINATE

REACTIONS (26)
  - COVID-19 [Recovered/Resolved]
  - Lung abscess [Recovering/Resolving]
  - General physical health deterioration [Not Recovered/Not Resolved]
  - Leukoencephalopathy [Unknown]
  - Intracranial pressure increased [Unknown]
  - Cerebral atrophy [Unknown]
  - Depression [Recovering/Resolving]
  - Movement disorder [Not Recovered/Not Resolved]
  - Somnolence [Not Recovered/Not Resolved]
  - Pyrexia [Recovered/Resolved]
  - Infection [Recovered/Resolved]
  - Hiccups [Recovered/Resolved]
  - Cough [Recovered/Resolved]
  - Vision blurred [Recovered/Resolved]
  - Auditory nerve disorder [Unknown]
  - Decreased interest [Unknown]
  - Fall [Unknown]
  - Memory impairment [Not Recovered/Not Resolved]
  - Disturbance in attention [Not Recovered/Not Resolved]
  - Optic atrophy [Not Recovered/Not Resolved]
  - Nasopharyngitis [Recovered/Resolved]
  - Bedridden [Unknown]
  - Tremor [Unknown]
  - Strabismus [Unknown]
  - Dysuria [Unknown]
  - Asthma [Unknown]

NARRATIVE: CASE EVENT DATE: 20200601
